FAERS Safety Report 5057194-7 (Version None)
Quarter: 2006Q3

REPORT INFORMATION
  Report Type: 
  Country: None (occurrence: None)
  Receive Date: 20060721
  Receipt Date: 20050601
  Transmission Date: 20061208
  Serious: No
  Sender: FDA-Public Use
  Company Number: S2005US07783

PATIENT
  Age: 58 Year
  Sex: Male

DRUGS (1)
  1. AVANDIA [Suspect]
     Indication: DRUG USE FOR UNKNOWN INDICATION

REACTIONS (2)
  - GLYCOSYLATED HAEMOGLOBIN DECREASED [None]
  - WEIGHT INCREASED [None]
